FAERS Safety Report 8339333-5 (Version None)
Quarter: 2012Q2

REPORT INFORMATION
  Report Type: 
  Country: None (occurrence: None)
  Receive Date: 20120507
  Receipt Date: 20120425
  Transmission Date: 20120825
  Serious: No
  Sender: FDA-Public Use
  Company Number: CA-JNJFOC-20120414148

PATIENT
  Sex: Male
  Weight: 117 kg

DRUGS (3)
  1. REMICADE [Suspect]
     Route: 042
     Dates: start: 20060101
  2. REMICADE [Suspect]
     Indication: CROHN'S DISEASE
     Route: 042
     Dates: start: 20120208
  3. IBUPROFEN TABLETS [Concomitant]
     Indication: PAIN
     Dosage: AS NEEDED
     Route: 065

REACTIONS (3)
  - PHARYNGITIS STREPTOCOCCAL [None]
  - FUNGAL INFECTION [None]
  - OROPHARYNGEAL PAIN [None]
